FAERS Safety Report 7094417-7 (Version None)
Quarter: 2010Q4

REPORT INFORMATION
  Report Type: 
  Country: None (occurrence: None)
  Receive Date: 20101110
  Receipt Date: 20101014
  Transmission Date: 20110411
  Serious: Yes (Death, Life-Threatening, Other)
  Sender: FDA-Public Use
  Company Number: US-BAXTER-2009BH016685

PATIENT
  Age: 71 Year
  Sex: Female

DRUGS (5)
  1. HEPARIN SODIUM INJECTION [Suspect]
     Indication: PROPHYLAXIS
     Route: 058
     Dates: start: 20071109, end: 20071112
  2. HEPARIN SODIUM INJECTION [Suspect]
     Route: 065
     Dates: start: 20071101
  3. EXCEDRIN (MIGRAINE) [Concomitant]
     Indication: PRODUCT USED FOR UNKNOWN INDICATION
     Route: 065
  4. TYLENOL [Concomitant]
     Indication: PRODUCT USED FOR UNKNOWN INDICATION
     Route: 065
  5. COD-LIVER OIL [Concomitant]
     Indication: PRODUCT USED FOR UNKNOWN INDICATION
     Route: 065

REACTIONS (16)
  - ABDOMINAL PAIN [None]
  - CHILLS [None]
  - DYSPHAGIA [None]
  - DYSPNOEA [None]
  - HYPERCALCAEMIA [None]
  - HYPERHIDROSIS [None]
  - HYPOXIA [None]
  - MENTAL STATUS CHANGES [None]
  - NAUSEA [None]
  - PHARYNGEAL OEDEMA [None]
  - PNEUMONIA ASPIRATION [None]
  - PRURITUS [None]
  - PYREXIA [None]
  - SHOCK [None]
  - SWELLING [None]
  - VOMITING [None]
